FAERS Safety Report 21748795 (Version 1)
Quarter: 2022Q4

REPORT INFORMATION
  Report Type: Spontaneous
  Country: JP (occurrence: JP)
  Receive Date: 20221219
  Receipt Date: 20221219
  Transmission Date: 20230113
  Serious: Yes (Life-Threatening, Hospitalization)
  Sender: FDA-Public Use
  Company Number: JP-Merck Healthcare KGaA-9371850

PATIENT
  Age: 75 Year
  Sex: Male
  Weight: 68 kg

DRUGS (17)
  1. ERBITUX [Suspect]
     Active Substance: CETUXIMAB
     Indication: Colon cancer
     Dosage: 700 MG, UNK
     Route: 041
     Dates: start: 20221024, end: 20221024
  2. MEKTOVI [Concomitant]
     Active Substance: BINIMETINIB
     Indication: Colon cancer
     Dosage: 15 MG, UNK
     Route: 048
     Dates: start: 20221024, end: 20221031
  3. BRAFTOVI [Concomitant]
     Active Substance: ENCORAFENIB
     Indication: Colon cancer
     Dosage: 75 MG, UNK
     Route: 048
     Dates: start: 20221024, end: 20221031
  4. LANSOPRAZOLE [Concomitant]
     Active Substance: LANSOPRAZOLE
     Indication: Product used for unknown indication
     Dosage: 30 MG, UNK
     Route: 048
     Dates: start: 20221024, end: 20221031
  5. SYMPROIC [Concomitant]
     Active Substance: NALDEMEDINE
     Indication: Product used for unknown indication
     Dosage: .2 MG, UNK
     Route: 048
     Dates: start: 20221024, end: 20221031
  6. AMITIZA [Concomitant]
     Active Substance: LUBIPROSTONE
     Indication: Product used for unknown indication
     Dosage: 24 UG, UNK
     Route: 048
     Dates: start: 20221024, end: 20221031
  7. MAGNESIUM OXIDE [Concomitant]
     Active Substance: MAGNESIUM OXIDE
     Indication: Product used for unknown indication
     Dosage: 330 MG, UNK
     Route: 048
     Dates: start: 20221024, end: 20221031
  8. SCOPOLAMINE [Concomitant]
     Active Substance: SCOPOLAMINE
     Indication: Product used for unknown indication
     Dosage: 330 MG, UNK
     Route: 048
     Dates: start: 20221024, end: 20221107
  9. DIMETHICONE [Concomitant]
     Active Substance: DIMETHICONE
     Indication: Product used for unknown indication
     Dosage: 40 MG, UNK
     Route: 048
     Dates: start: 20221024, end: 20221031
  10. LOXOPROFEN SODIUM [Concomitant]
     Active Substance: LOXOPROFEN SODIUM
     Indication: Product used for unknown indication
     Dosage: 60 MG, UNK
     Route: 048
     Dates: start: 20221024, end: 20221107
  11. ACETAMINOPHEN [Concomitant]
     Active Substance: ACETAMINOPHEN
     Indication: Product used for unknown indication
     Dosage: 500 MG, UNK
     Route: 048
     Dates: start: 20221024, end: 20221107
  12. OXYCODONE [Concomitant]
     Active Substance: OXYCODONE
     Indication: Product used for unknown indication
     Dosage: 20 MG, UNK
     Route: 048
     Dates: start: 20221024, end: 20221107
  13. OXYCODONE [Concomitant]
     Active Substance: OXYCODONE
     Dosage: 5 MG, UNK
     Route: 048
     Dates: start: 20221024, end: 20221107
  14. HEPARINOIDE [Concomitant]
     Indication: Product used for unknown indication
     Dosage: .3 %, UNK
     Route: 065
     Dates: start: 20221024, end: 20221107
  15. ALCLOMETASONE DIPROPIONATE [Concomitant]
     Active Substance: ALCLOMETASONE DIPROPIONATE
     Indication: Product used for unknown indication
     Dosage: .1 %, UNK
     Route: 065
     Dates: start: 20221024, end: 20221107
  16. BETAMETHASONE VALERATE [Concomitant]
     Active Substance: BETAMETHASONE VALERATE
     Indication: Product used for unknown indication
     Dosage: .1 %, UNK
     Route: 065
     Dates: start: 20221024, end: 20221107
  17. ACETAMINOPHEN [Concomitant]
     Active Substance: ACETAMINOPHEN
     Indication: Product used for unknown indication
     Dosage: 1000 MG, UNK
     Route: 041
     Dates: start: 20221024, end: 20221024

REACTIONS (7)
  - Acute respiratory distress syndrome [Unknown]
  - Cardiac failure [Unknown]
  - Dyspnoea exertional [Unknown]
  - Lung opacity [Unknown]
  - Pleural effusion [Unknown]
  - Abdominal pain [Unknown]
  - Interstitial lung disease [Not Recovered/Not Resolved]

NARRATIVE: CASE EVENT DATE: 20221108
